FAERS Safety Report 6534987-8 (Version None)
Quarter: 2010Q1

REPORT INFORMATION
  Report Type: 
  Country: None (occurrence: None)
  Receive Date: 20100111
  Receipt Date: 20100111
  Transmission Date: 20100710
  Serious: Yes (Hospitalization)
  Sender: FDA-Public Use
  Company Number: None

PATIENT
  Age: 60 Year
  Sex: Male
  Weight: 102.8 kg

DRUGS (2)
  1. VIAGRA [Suspect]
     Indication: ERECTILE DYSFUNCTION
     Dosage: 100 MG PRN PO
     Route: 048
     Dates: start: 20040421, end: 20091027
  2. NITROGLYCERIN [Suspect]
     Indication: CHEST PAIN
     Dosage: 1 TAB PRN SUBLINGUAL
     Route: 060
     Dates: start: 20091016

REACTIONS (5)
  - DISCOMFORT [None]
  - DYSPNOEA [None]
  - FEELING ABNORMAL [None]
  - MYOCARDIAL INFARCTION [None]
  - SENSATION OF HEAVINESS [None]
